FAERS Safety Report 5308217-9 (Version None)
Quarter: 2007Q2

REPORT INFORMATION
  Report Type: 
  Country: None (occurrence: None)
  Receive Date: 20070426
  Receipt Date: 20070417
  Transmission Date: 20071010
  Serious: Yes (Other)
  Sender: FDA-Public Use
  Company Number: 2007UW07736

PATIENT
  Age: 70 Year
  Sex: Male

DRUGS (5)
  1. SEROQUEL [Suspect]
     Route: 048
  2. NITROGLYCERIN [Concomitant]
  3. ASPIRIN [Concomitant]
  4. BETABLOCKER [Concomitant]
  5. BENZODIAZEPINE [Concomitant]

REACTIONS (1)
  - GASTROINTESTINAL HAEMORRHAGE [None]
